FAERS Safety Report 13929028 (Version 4)
Quarter: 2017Q3

REPORT INFORMATION
  Report Type: Report from Study
  Country: US (occurrence: US)
  Receive Date: 20170901
  Receipt Date: 20170922
  Transmission Date: 20171127
  Serious: Yes (Hospitalization, Other)
  Sender: FDA-Public Use
  Company Number: US-ALEXION PHARMACEUTICALS INC.-A201709721

PATIENT
  Sex: Male

DRUGS (1)
  1. SOLIRIS [Suspect]
     Active Substance: ECULIZUMAB
     Indication: HAEMOLYTIC URAEMIC SYNDROME
     Dosage: UNK
     Route: 042

REACTIONS (8)
  - Skin disorder [Unknown]
  - Sepsis [Unknown]
  - Back pain [Unknown]
  - Groin infection [Unknown]
  - Pelvic pain [Unknown]
  - Pain in extremity [Unknown]
  - Gait disturbance [Unknown]
  - Groin pain [Unknown]
